FAERS Safety Report 13574855 (Version 1)
Quarter: 2017Q2

REPORT INFORMATION
  Report Type: Spontaneous
  Country: FI (occurrence: FI)
  Receive Date: 20170523
  Receipt Date: 20170523
  Transmission Date: 20170830
  Serious: Yes (Death, Other)
  Sender: FDA-Public Use
  Company Number: FI-IMPAX LABORATORIES, INC-2017-IPXL-01422

PATIENT
  Age: 4 Month
  Sex: Female

DRUGS (1)
  1. PROPRANOLOL HYDROCHLORIDE IR [Suspect]
     Active Substance: PROPRANOLOL HYDROCHLORIDE
     Indication: ATRIOVENTRICULAR BLOCK SECOND DEGREE
     Dosage: UNK
     Route: 065

REACTIONS (7)
  - Infantile spasms [Unknown]
  - Myocardial ischaemia [Fatal]
  - Torsade de pointes [Unknown]
  - Syncope [Unknown]
  - Seizure [Unknown]
  - Non-compaction cardiomyopathy [Unknown]
  - Developmental delay [Unknown]
